FAERS Safety Report 9187507 (Version 6)
Quarter: 2013Q4

REPORT INFORMATION
  Report Type: Spontaneous
  Country: US (occurrence: US)
  Receive Date: 20130325
  Receipt Date: 20131031
  Transmission Date: 20140711
  Serious: No
  Sender: FDA-Public Use
  Company Number: US-PFIZER INC-2013093633

PATIENT
  Age: 39 Year
  Sex: Female
  Weight: 54.88 kg

DRUGS (3)
  1. ADVIL PM [Suspect]
     Indication: PAIN
     Dosage: UNK
  2. ADVIL PM [Suspect]
     Indication: RELAXATION THERAPY
     Dosage: UNK, DAILY
     Dates: start: 201308, end: 201309
  3. ADVIL PM [Suspect]
     Indication: SLEEP DISORDER

REACTIONS (1)
  - Drug ineffective [Unknown]
